FAERS Safety Report 22109162 (Version 1)
Quarter: 2023Q1

REPORT INFORMATION
  Report Type: Spontaneous
  Country: CN (occurrence: CN)
  Receive Date: 20230317
  Receipt Date: 20230317
  Transmission Date: 20230418
  Serious: Yes (Other)
  Sender: FDA-Public Use
  Company Number: CN-ASPEN-GLO2023CN001605

PATIENT

DRUGS (5)
  1. LEUKERAN [Suspect]
     Active Substance: CHLORAMBUCIL
     Indication: B-cell small lymphocytic lymphoma
     Dosage: 36 MG, 1 DOSE 2 WEEKS
     Route: 048
     Dates: start: 20220215, end: 20220720
  2. RITUXIMAB [Suspect]
     Active Substance: RITUXIMAB
     Indication: B-cell small lymphocytic lymphoma
     Dosage: 717 MG, 1 DOSE 4 WEEKS
     Route: 042
     Dates: start: 20220215, end: 20220215
  3. RITUXIMAB [Suspect]
     Active Substance: RITUXIMAB
     Dosage: 932 MG, 1 DOSE 4 WEEKS
     Route: 042
     Dates: start: 20220316, end: 20220316
  4. RITUXIMAB [Suspect]
     Active Substance: RITUXIMAB
     Dosage: 945 MG, 1 DOSE 4 WEEKS
     Route: 042
     Dates: start: 20220412, end: 20220706
  5. ENTECAVIR [Concomitant]
     Active Substance: ENTECAVIR
     Indication: Antiviral prophylaxis
     Dosage: 0.5 MG, QD
     Route: 048
     Dates: start: 20220301, end: 20230121

REACTIONS (1)
  - Tonsil cancer [Not Recovered/Not Resolved]

NARRATIVE: CASE EVENT DATE: 20221209
